FAERS Safety Report 6753091-7 (Version None)
Quarter: 2010Q2

REPORT INFORMATION
  Report Type: 
  Country: None (occurrence: None)
  Receive Date: 20100603
  Receipt Date: 20100525
  Transmission Date: 20101027
  Serious: Yes (Hospitalization, Other)
  Sender: FDA-Public Use
  Company Number: PHHY2010BR34505

PATIENT
  Age: 64 Year
  Sex: Male

DRUGS (4)
  1. EXELON [Suspect]
     Indication: DEMENTIA
     Dosage: 1.5MG, TWICE A DAY, 1 CAPSULE EVERY 12 HOURS, FOUR WEEKS
     Route: 048
  2. EXELON [Suspect]
     Dosage: 3 MG, TWICE A DAY, 1 CAPSULE EVERY 12 HOURS, FOUR WEEKS
     Route: 048
  3. EXELON [Suspect]
     Dosage: 4.5MG, TWICE A DAY, 1 CAPSULE EVERY 12 HOURS, FOUR WEEKS
     Route: 048
  4. EBIX [Concomitant]
     Dosage: UNK,
     Route: 048

REACTIONS (4)
  - HAEMATEMESIS [None]
  - MALLORY-WEISS SYNDROME [None]
  - UPPER GASTROINTESTINAL HAEMORRHAGE [None]
  - VOMITING [None]
